FAERS Safety Report 6082861-6 (Version None)
Quarter: 2009Q1

REPORT INFORMATION
  Report Type: 
  Country: None (occurrence: None)
  Receive Date: 20090202
  Receipt Date: 20061211
  Transmission Date: 20090719
  Serious: No
  Sender: FDA-Public Use
  Company Number: 255346

PATIENT
  Age: 13 Year
  Sex: Female
  Weight: 44.4 kg

DRUGS (1)
  1. NOVOLOG [Suspect]
     Indication: TYPE 1 DIABETES MELLITUS
     Dosage: SUBCUTAN.-PUMP
     Dates: start: 20031102

REACTIONS (2)
  - DRUG INEFFECTIVE [None]
  - KETOACIDOSIS [None]
